FAERS Safety Report 8597786-1 (Version None)
Quarter: 2012Q3

REPORT INFORMATION
  Report Type: 
  Country: None (occurrence: None)
  Receive Date: 20120816
  Receipt Date: 20120813
  Transmission Date: 20120928
  Serious: Yes (Hospitalization)
  Sender: FDA-Public Use
  Company Number: PHEH2012US012058

PATIENT
  Sex: Male

DRUGS (10)
  1. ZONEGRAN [Concomitant]
  2. NEXIUM [Concomitant]
  3. CLONAZEPAM [Concomitant]
  4. MIRALAX [Concomitant]
  5. AFINITOR [Suspect]
     Indication: ASTROCYTOMA, LOW GRADE
     Dosage: 10 MG, QD
     Route: 048
     Dates: start: 20110501
  6. ZANTAC [Concomitant]
  7. ATIVAN [Concomitant]
  8. TEGRETOL [Concomitant]
  9. CARAFATE [Concomitant]
  10. CLONIDINE [Concomitant]

REACTIONS (1)
  - NEPHROLITHIASIS [None]
